FAERS Safety Report 6581324-9 (Version None)
Quarter: 2010Q1

REPORT INFORMATION
  Report Type: 
  Country: None (occurrence: None)
  Receive Date: 20100203
  Receipt Date: 20100126
  Transmission Date: 20100710
  Serious: Yes (Life-Threatening, Hospitalization, Other)
  Sender: FDA-Public Use
  Company Number: 09CH001229

PATIENT
  Age: 19 Year
  Sex: Male

DRUGS (1)
  1. VALPROIC ACID [Suspect]
     Indication: EPILEPSY
     Dosage: 1 G, QD;

REACTIONS (19)
  - AGITATION [None]
  - ASPIRATION [None]
  - BLOOD PRESSURE SYSTOLIC INCREASED [None]
  - BLOOD SODIUM INCREASED [None]
  - BRAIN STEM SYNDROME [None]
  - COMA [None]
  - CONFUSIONAL STATE [None]
  - CSF GLUCOSE INCREASED [None]
  - CSF LACTATE INCREASED [None]
  - DIABETES INSIPIDUS [None]
  - DRUG TOXICITY [None]
  - HYPERAMMONAEMIA [None]
  - LACTIC ACIDOSIS [None]
  - OVERDOSE [None]
  - PANCYTOPENIA [None]
  - PUPILLARY REFLEX IMPAIRED [None]
  - PYREXIA [None]
  - TACHYCARDIA [None]
  - VOMITING [None]
